FAERS Safety Report 4512395-9 (Version None)
Quarter: 2004Q4

REPORT INFORMATION
  Report Type: 
  Country: None (occurrence: None)
  Receive Date: 20041123
  Receipt Date: 20041108
  Transmission Date: 20050328
  Serious: Yes (Other)
  Sender: FDA-Public Use
  Company Number: 2004-BP-11599RO

PATIENT
  Age: 56 Year
  Sex: Female

DRUGS (7)
  1. METHOTREXATE [Suspect]
     Indication: RHEUMATOID ARTHRITIS
     Dosage: SEE IMAGE
     Route: 048
     Dates: start: 19980901, end: 20011201
  2. METHOTREXATE [Suspect]
     Indication: RHEUMATOID ARTHRITIS
     Dosage: SEE IMAGE
     Route: 048
     Dates: start: 20011201, end: 20040401
  3. NSAIDS (NSAID'S) [Suspect]
     Indication: RHEUMATOID ARTHRITIS
     Dates: start: 19980101
  4. CORTICOSTEROIDS (CORTICOSTEROIDS) [Suspect]
     Indication: RHEUMATOID ARTHRITIS
     Dates: start: 19980101
  5. SULFASALAZINE [Suspect]
     Indication: RHEUMATOID ARTHRITIS
     Dates: start: 20000101
  6. HYDROXYCHLOROQUINE SULFATE [Suspect]
     Indication: RHEUMATOID ARTHRITIS
     Dates: start: 20010101
  7. ERYTHROPOIETIN (ERYTHROPOIETIN) [Concomitant]

REACTIONS (5)
  - DISEASE PROGRESSION [None]
  - MACROCYTOSIS [None]
  - MYELODYSPLASTIC SYNDROME [None]
  - POLYARTHRITIS [None]
  - REFRACTORY ANAEMIA [None]
